FAERS Safety Report 6974399-6 (Version None)
Quarter: 2010Q3

REPORT INFORMATION
  Report Type: 
  Country: None (occurrence: None)
  Receive Date: 20100909
  Receipt Date: 20100811
  Transmission Date: 20110219
  Serious: Yes (Hospitalization, Other)
  Sender: FDA-Public Use
  Company Number: PHEH2008US03330

PATIENT
  Sex: Female

DRUGS (21)
  1. ZOMETA [Suspect]
     Dosage: 4 MG, UNK
     Route: 042
     Dates: start: 20010101, end: 20060301
  2. RADIATION TREATMENT [Concomitant]
  3. SEROQUEL [Concomitant]
     Dosage: 25 MG
  4. VENLAFAXINE [Concomitant]
  5. XANAX [Concomitant]
     Dosage: 2 MG
  6. LIDOCAINE [Concomitant]
  7. WELLBUTRIN [Concomitant]
     Dosage: 200 MG
  8. CYMBALTA [Concomitant]
  9. CHEMOTHERAPEUTICS NOS [Concomitant]
  10. HERCEPTIN [Concomitant]
  11. MS CONTIN [Concomitant]
  12. MORPHINE SULFATE [Concomitant]
  13. CIPRO [Concomitant]
     Dosage: 500 MG, BID
  14. ZOLOFT [Concomitant]
  15. HYDROCODONE [Concomitant]
  16. UNASYN [Concomitant]
  17. CHLORHEXIDINE GLUCONATE [Concomitant]
  18. SKELAXIN [Concomitant]
  19. LORA TAB [Concomitant]
     Dosage: UNK
  20. ATIVAN [Concomitant]
     Dosage: UNK
  21. HERCEPTIN [Concomitant]

REACTIONS (64)
  - ANGIOPATHY [None]
  - ANXIETY [None]
  - ARTHRALGIA [None]
  - ATTENTION DEFICIT/HYPERACTIVITY DISORDER [None]
  - BACK PAIN [None]
  - BONE DISORDER [None]
  - BONE NEOPLASM MALIGNANT [None]
  - BOWEL MOVEMENT IRREGULARITY [None]
  - BRONCHITIS [None]
  - CARDIOMYOPATHY [None]
  - CELLULITIS [None]
  - CENTRAL VENOUS CATHETERISATION [None]
  - CHRONIC FATIGUE SYNDROME [None]
  - CHRONIC OBSTRUCTIVE PULMONARY DISEASE [None]
  - COUGH [None]
  - DEBRIDEMENT [None]
  - DENTAL CARIES [None]
  - DEPRESSION [None]
  - DYSPNOEA [None]
  - EAR PAIN [None]
  - EJECTION FRACTION DECREASED [None]
  - ENDODONTIC PROCEDURE [None]
  - FALL [None]
  - GENERAL PHYSICAL HEALTH DETERIORATION [None]
  - GENERALISED ANXIETY DISORDER [None]
  - HEADACHE [None]
  - HYPOKINESIA [None]
  - INFECTION [None]
  - JAW DISORDER [None]
  - JAW OPERATION [None]
  - LOOSE TOOTH [None]
  - LUNG INFILTRATION [None]
  - MEDICAL DEVICE IMPLANTATION [None]
  - METASTASES TO BONE [None]
  - MICTURITION URGENCY [None]
  - MIGRAINE WITH AURA [None]
  - MOUTH ULCERATION [None]
  - MUSCULOSKELETAL PAIN [None]
  - NERVOUSNESS [None]
  - OSTEOLYSIS [None]
  - OSTEONECROSIS OF JAW [None]
  - OTITIS MEDIA [None]
  - PAIN [None]
  - PAIN IN EXTREMITY [None]
  - PAIN IN JAW [None]
  - PERIODONTAL DISEASE [None]
  - PERIODONTITIS [None]
  - PNEUMONIA [None]
  - POSITRON EMISSION TOMOGRAM ABNORMAL [None]
  - PURULENT DISCHARGE [None]
  - RED BLOOD CELL SEDIMENTATION RATE INCREASED [None]
  - RHINITIS ALLERGIC [None]
  - RIB FRACTURE [None]
  - SOFT TISSUE DISORDER [None]
  - SUPERINFECTION [None]
  - SUPERIOR VENA CAVAL OCCLUSION [None]
  - SURGERY [None]
  - SWELLING [None]
  - TOOTH EXTRACTION [None]
  - TOOTH LOSS [None]
  - TOOTHACHE [None]
  - TYMPANIC MEMBRANE DISORDER [None]
  - URINARY TRACT INFECTION [None]
  - VITAMIN D DEFICIENCY [None]
